FAERS Safety Report 14968796 (Version 1)
Quarter: 2018Q2

REPORT INFORMATION
  Report Type: Spontaneous
  Country: FR (occurrence: FR)
  Receive Date: 20180604
  Receipt Date: 20180604
  Transmission Date: 20180711
  Serious: Yes (Other)
  Sender: FDA-Public Use
  Company Number: FR-PFIZER INC-2018218525

PATIENT
  Age: 42 Year
  Sex: Male

DRUGS (2)
  1. ATORVASTATIN CALCIUM. [Suspect]
     Active Substance: ATORVASTATIN CALCIUM
     Indication: PROPHYLAXIS
     Dosage: 10 MG, UNK
     Dates: end: 201803
  2. PREVISCAN /00789001/ [Suspect]
     Active Substance: FLUINDIONE
     Indication: PROPHYLAXIS
     Dosage: UNK
     Route: 048
     Dates: start: 1998

REACTIONS (1)
  - International normalised ratio increased [Recovered/Resolved]

NARRATIVE: CASE EVENT DATE: 201803
